FAERS Safety Report 8001619-1 (Version None)
Quarter: 2011Q4

REPORT INFORMATION
  Report Type: 
  Country: None (occurrence: None)
  Receive Date: 20111222
  Receipt Date: 20111213
  Transmission Date: 20120403
  Serious: Yes (Other)
  Sender: FDA-Public Use
  Company Number: GB-ROCHE-1023217

PATIENT

DRUGS (13)
  1. LUCENTIS [Suspect]
     Dates: start: 20080828
  2. LUCENTIS [Suspect]
     Dates: start: 20110516
  3. LUCENTIS [Suspect]
     Dates: start: 20071231
  4. LUCENTIS [Suspect]
     Dates: start: 20080616
  5. LUCENTIS [Suspect]
     Dates: start: 20080201
  6. LUCENTIS [Suspect]
     Dates: start: 20111128
  7. LUCENTIS [Suspect]
     Dates: start: 20110317
  8. LUCENTIS [Suspect]
     Dates: start: 20080331
  9. LUCENTIS [Suspect]
     Dates: start: 20080429
  10. LUCENTIS [Suspect]
     Dates: start: 20080721
  11. LUCENTIS [Suspect]
     Dates: start: 20110728
  12. LUCENTIS [Suspect]
     Indication: PRODUCT USED FOR UNKNOWN INDICATION
     Dates: start: 20071130
  13. LUCENTIS [Suspect]
     Dates: start: 20111014

REACTIONS (1)
  - CARDIOVASCULAR DISORDER [None]
